FAERS Safety Report 7548753-8 (Version None)
Quarter: 2011Q2

REPORT INFORMATION
  Report Type: 
  Country: None (occurrence: None)
  Receive Date: 20110615
  Receipt Date: 20110531
  Transmission Date: 20111010
  Serious: Yes (Hospitalization)
  Sender: FDA-Public Use
  Company Number: IE-ELI_LILLY_AND_COMPANY-IE201103006106

PATIENT
  Age: 45 Year
  Sex: Female

DRUGS (7)
  1. ZYPREXA [Suspect]
     Dosage: 5 MG, OTHER
     Route: 048
     Dates: start: 20100601, end: 20110201
  2. MIRTAZAPINE [Concomitant]
     Dosage: 61 MG, QD
     Route: 048
  3. ALPRAZOLAM [Concomitant]
     Dosage: 0.25 MG, BID
  4. FLUOXETINE HCL [Concomitant]
     Dosage: 20 MG, QD
     Route: 048
  5. AGOMELATIN [Concomitant]
     Dosage: 50 MG, UNK
     Route: 048
  6. ZOPICLONE [Concomitant]
     Dosage: 7.5 MG, QD
     Route: 048
  7. ZYPREXA [Suspect]
     Indication: DEPRESSION SUICIDAL
     Dosage: 20 MG, QD
     Route: 048
     Dates: start: 20100601

REACTIONS (6)
  - PROTHROMBIN LEVEL ABNORMAL [None]
  - HEPATIC FAILURE [None]
  - OFF LABEL USE [None]
  - HEPATITIS VIRAL [None]
  - WHITE BLOOD CELL DISORDER [None]
  - HYPOTENSION [None]
